FAERS Safety Report 11103011 (Version 1)
Quarter: 2015Q2

REPORT INFORMATION
  Report Type: Spontaneous
  Country: US (occurrence: None)
  Receive Date: 20150508
  Receipt Date: 20150508
  Transmission Date: 20150821
  Serious: Yes (Hospitalization)
  Sender: FDA-Public Use
  Company Number: None

PATIENT
  Age: 68 Year
  Sex: Male
  Weight: 77.3 kg

DRUGS (2)
  1. BENDAMUSTIN HYDROCHLORIDE [Suspect]
     Active Substance: BENDAMUSTINE HYDROCHLORIDE
     Dosage: RECEIVED BOTH DYA 1 AND 2 INFUSION?
     Dates: end: 20150430
  2. RITUXIMAB (MOAB C2B8 ANTI CD20 CHIMERIC) [Suspect]
     Active Substance: RITUXIMAB
     Dates: end: 20150430

REACTIONS (5)
  - Drug hypersensitivity [None]
  - Blood pressure decreased [None]
  - Tachycardia [None]
  - Feeling cold [None]
  - Rash macular [None]

NARRATIVE: CASE EVENT DATE: 20150430
